FAERS Safety Report 16597534 (Version 1)
Quarter: 2019Q3

REPORT INFORMATION
  Report Type: Spontaneous
  Country: US (occurrence: US)
  Receive Date: 20190718
  Receipt Date: 20190718
  Transmission Date: 20191004
  Serious: Yes (Death, Life-Threatening, Hospitalization)
  Sender: FDA-Public Use
  Company Number: None

PATIENT
  Age: 77 Year
  Sex: Male
  Weight: 85.1 kg

DRUGS (2)
  1. NORMAL SALINE [Concomitant]
     Active Substance: SODIUM CHLORIDE
     Dates: start: 20190611, end: 20190611
  2. FERAHEME [Suspect]
     Active Substance: FERUMOXYTOL NON-STOICHIOMETRIC MAGNETITE
     Indication: ANAEMIA
     Dosage: ?          OTHER FREQUENCY:ONCE;?
     Route: 041
     Dates: start: 20190611, end: 20190611

REACTIONS (4)
  - Cardiac arrest [None]
  - Seizure [None]
  - Atrial fibrillation [None]
  - Anaphylactic reaction [None]

NARRATIVE: CASE EVENT DATE: 20190611
